FAERS Safety Report 16430686 (Version 2)
Quarter: 2019Q2

REPORT INFORMATION
  Report Type: Spontaneous
  Country: SI (occurrence: SI)
  Receive Date: 20190614
  Receipt Date: 20190619
  Transmission Date: 20190711
  Serious: Yes (Death, Hospitalization, Other)
  Sender: FDA-Public Use
  Company Number: SI-TAKEDA-2019TEU006910

PATIENT
  Age: 3 Week
  Sex: Female

DRUGS (1)
  1. COLCHICINE. [Suspect]
     Active Substance: COLCHICINE
     Indication: ABDOMINAL PAIN
     Dosage: 1 MILLIGRAM/KILOGRAM
     Route: 065
     Dates: start: 2017

REACTIONS (12)
  - Cardiac arrest [Unknown]
  - Hyperkalaemia [Unknown]
  - Anaemia [Unknown]
  - Death [Fatal]
  - Apnoea [Unknown]
  - Mydriasis [Unknown]
  - Vomiting [Unknown]
  - Skin wrinkling [Unknown]
  - Loss of consciousness [Unknown]
  - Intercepted product dispensing error [Fatal]
  - Lactic acidosis [Unknown]
  - Diarrhoea [Unknown]
